FAERS Safety Report 14763265 (Version 1)
Quarter: 2018Q2

REPORT INFORMATION
  Report Type: Spontaneous
  Country: US (occurrence: US)
  Receive Date: 20180416
  Receipt Date: 20180416
  Transmission Date: 20180711
  Serious: No
  Sender: FDA-Public Use
  Company Number: US-BAYER-2018-072741

PATIENT
  Age: 11 Year
  Sex: Male
  Weight: 81.63 kg

DRUGS (4)
  1. MIRALAX [Suspect]
     Active Substance: POLYETHYLENE GLYCOL 3350
     Indication: GASTROINTESTINAL DISORDER
     Dosage: 1 DF, Q2HR
     Dates: start: 20180411
  2. AMITRIPTYLINE [Concomitant]
     Active Substance: AMITRIPTYLINE
  3. PEPPERMINT. [Concomitant]
     Active Substance: PEPPERMINT
  4. PREVACID [Concomitant]
     Active Substance: LANSOPRAZOLE

REACTIONS (4)
  - Off label use [Unknown]
  - Product use issue [Unknown]
  - Expired product administered [None]
  - Product use in unapproved indication [Unknown]

NARRATIVE: CASE EVENT DATE: 201804
